FAERS Safety Report 5981065-2 (Version None)
Quarter: 2008Q4

REPORT INFORMATION
  Report Type: 
  Country: None (occurrence: None)
  Receive Date: 20081205
  Receipt Date: 20081029
  Transmission Date: 20090506
  Serious: No
  Sender: FDA-Public Use
  Company Number: A0754017A

PATIENT
  Age: 37 Year
  Sex: Male

DRUGS (2)
  1. COMMIT [Suspect]
     Indication: DRUG USE FOR UNKNOWN INDICATION
  2. NICORETTE [Suspect]
     Indication: DRUG USE FOR UNKNOWN INDICATION

REACTIONS (1)
  - INTENTIONAL DRUG MISUSE [None]
